FAERS Safety Report 10357938 (Version 6)
Quarter: 2015Q2

REPORT INFORMATION
  Report Type: Report from Study
  Country: JP (occurrence: JP)
  Receive Date: 20140801
  Receipt Date: 20150521
  Transmission Date: 20150821
  Serious: Yes (Hospitalization)
  Sender: FDA-Public Use
  Company Number: JP-JNJFOC-20140713951

PATIENT
  Age: 61 Year
  Sex: Male
  Weight: 64 kg

DRUGS (48)
  1. XEPLION [Suspect]
     Active Substance: PALIPERIDONE PALMITATE
     Indication: SCHIZOPHRENIA, PARANOID TYPE
     Route: 030
     Dates: start: 20140804, end: 20140804
  2. RISPERDAL [Concomitant]
     Active Substance: RISPERIDONE
     Indication: SCHIZOPHRENIA, PARANOID TYPE
     Route: 048
     Dates: start: 20140401, end: 20140407
  3. LEVOTOMIN [Concomitant]
     Active Substance: LEVOMEPROMAZINE
     Indication: IRRITABILITY
     Route: 048
     Dates: end: 20140420
  4. URIEF [Concomitant]
     Active Substance: SILODOSIN
     Indication: BENIGN PROSTATIC HYPERPLASIA
     Route: 048
  5. DORAL [Concomitant]
     Active Substance: QUAZEPAM
     Indication: INSOMNIA
     Route: 048
     Dates: start: 20140414, end: 20140519
  6. LYRICA [Concomitant]
     Active Substance: PREGABALIN
     Indication: SPINAL COMPRESSION FRACTURE
     Route: 048
     Dates: start: 20140513, end: 20140519
  7. XEPLION [Suspect]
     Active Substance: PALIPERIDONE PALMITATE
     Indication: SCHIZOPHRENIA, PARANOID TYPE
     Route: 030
     Dates: start: 20140601, end: 20140601
  8. AVOLVE [Concomitant]
     Active Substance: DUTASTERIDE
     Indication: BENIGN PROSTATIC HYPERPLASIA
     Route: 048
  9. CLARITH [Concomitant]
     Active Substance: CLARITHROMYCIN
     Indication: BRONCHITIS CHRONIC
     Route: 048
  10. PARLODEL [Concomitant]
     Active Substance: BROMOCRIPTINE MESYLATE
     Indication: HAEMORRHOIDS
     Route: 048
     Dates: start: 20140410, end: 20140417
  11. XEPLION [Suspect]
     Active Substance: PALIPERIDONE PALMITATE
     Indication: SCHIZOPHRENIA, PARANOID TYPE
     Route: 030
     Dates: start: 20140331, end: 20140331
  12. XEPLION [Suspect]
     Active Substance: PALIPERIDONE PALMITATE
     Indication: SCHIZOPHRENIA, PARANOID TYPE
     Route: 030
     Dates: start: 20140407, end: 20140407
  13. XEPLION [Suspect]
     Active Substance: PALIPERIDONE PALMITATE
     Indication: SCHIZOPHRENIA, PARANOID TYPE
     Route: 030
     Dates: start: 20140701, end: 20140701
  14. LEVOTOMIN [Concomitant]
     Active Substance: LEVOMEPROMAZINE
     Indication: IRRITABILITY
     Route: 048
     Dates: start: 20140421
  15. CIRCANETTEN [Concomitant]
     Active Substance: KERATIN\SENNA LEAF
     Indication: HAEMORRHOIDS
     Route: 048
  16. POTACOL-R [Concomitant]
     Indication: WATER INTOXICATION
     Route: 050
     Dates: start: 20140410, end: 20140414
  17. LASIX [Concomitant]
     Active Substance: FUROSEMIDE
     Indication: RHABDOMYOLYSIS
     Route: 050
     Dates: start: 20140410, end: 20140414
  18. XYZAL [Concomitant]
     Active Substance: LEVOCETIRIZINE DIHYDROCHLORIDE
     Indication: PRURITUS
     Route: 048
     Dates: start: 20140421, end: 20140425
  19. XEPLION [Suspect]
     Active Substance: PALIPERIDONE PALMITATE
     Indication: SCHIZOPHRENIA, PARANOID TYPE
     Route: 030
     Dates: start: 20141229, end: 20141229
  20. XEPLION [Suspect]
     Active Substance: PALIPERIDONE PALMITATE
     Indication: SCHIZOPHRENIA, PARANOID TYPE
     Route: 030
     Dates: start: 20150301, end: 20150301
  21. LENDORMIN D [Concomitant]
     Active Substance: BROTIZOLAM
     Indication: SCHIZOPHRENIA, PARANOID TYPE
     Route: 048
  22. NEXIUM [Concomitant]
     Active Substance: ESOMEPRAZOLE MAGNESIUM
     Indication: GASTROOESOPHAGEAL REFLUX DISEASE
     Route: 048
  23. XEPLION [Suspect]
     Active Substance: PALIPERIDONE PALMITATE
     Indication: SCHIZOPHRENIA, PARANOID TYPE
     Route: 030
     Dates: start: 20140505, end: 20140505
  24. RISPERDAL [Concomitant]
     Active Substance: RISPERIDONE
     Indication: SCHIZOPHRENIA, PARANOID TYPE
     Route: 048
     Dates: start: 20140331, end: 20140331
  25. MAGMITT [Concomitant]
     Active Substance: MAGNESIUM OXIDE
     Indication: CONSTIPATION
     Route: 048
     Dates: end: 20140623
  26. MAGMITT [Concomitant]
     Active Substance: MAGNESIUM OXIDE
     Indication: CONSTIPATION
     Route: 048
     Dates: start: 20140624
  27. LEVOTOMIN [Concomitant]
     Active Substance: LEVOMEPROMAZINE
     Indication: SCHIZOPHRENIA, PARANOID TYPE
     Route: 048
     Dates: start: 20140421
  28. MUCODYNE [Concomitant]
     Active Substance: CARBOCYSTEINE
     Indication: BRONCHITIS CHRONIC
     Route: 048
  29. PANTOSIN [Concomitant]
     Active Substance: PANTETHINE
     Indication: CONSTIPATION
     Route: 050
     Dates: start: 20140410, end: 20140414
  30. POTACOL-R [Concomitant]
     Indication: RHABDOMYOLYSIS
     Route: 050
     Dates: start: 20140410, end: 20140414
  31. PURSENNID [Concomitant]
     Active Substance: SENNOSIDES A AND B
     Indication: CONSTIPATION
     Route: 048
     Dates: start: 20140410, end: 20150125
  32. XEPLION [Suspect]
     Active Substance: PALIPERIDONE PALMITATE
     Indication: SCHIZOPHRENIA, PARANOID TYPE
     Route: 030
     Dates: start: 20141125, end: 20141125
  33. XEPLION [Suspect]
     Active Substance: PALIPERIDONE PALMITATE
     Indication: SCHIZOPHRENIA, PARANOID TYPE
     Route: 030
     Dates: start: 20150126, end: 20150126
  34. ARTANE [Concomitant]
     Active Substance: TRIHEXYPHENIDYL HYDROCHLORIDE
     Indication: PROPHYLAXIS
     Route: 048
     Dates: end: 20140731
  35. ACETATED RINGER^S SOLUTION WITH GLUCOSE [Concomitant]
     Indication: RHABDOMYOLYSIS
     Route: 050
     Dates: start: 20140410, end: 20140414
  36. LYRICA [Concomitant]
     Active Substance: PREGABALIN
     Indication: SPINAL COMPRESSION FRACTURE
     Route: 048
     Dates: start: 20140520, end: 20140602
  37. XEPLION [Suspect]
     Active Substance: PALIPERIDONE PALMITATE
     Indication: SCHIZOPHRENIA, PARANOID TYPE
     Route: 030
     Dates: start: 20140901, end: 20140901
  38. RISPERDAL [Concomitant]
     Active Substance: RISPERIDONE
     Indication: SCHIZOPHRENIA, PARANOID TYPE
     Route: 048
     Dates: end: 20140331
  39. LUNESTA [Concomitant]
     Active Substance: ESZOPICLONE
     Indication: SCHIZOPHRENIA, PARANOID TYPE
     Route: 048
  40. ACETATED RINGER^S SOLUTION WITH GLUCOSE [Concomitant]
     Indication: WATER INTOXICATION
     Route: 050
     Dates: start: 20140410, end: 20140414
  41. LYRICA [Concomitant]
     Active Substance: PREGABALIN
     Indication: SPINAL COMPRESSION FRACTURE
     Route: 048
     Dates: start: 20141201
  42. LYRICA [Concomitant]
     Active Substance: PREGABALIN
     Indication: SPINAL COMPRESSION FRACTURE
     Route: 048
     Dates: start: 20140603, end: 20141130
  43. XEPLION [Suspect]
     Active Substance: PALIPERIDONE PALMITATE
     Indication: SCHIZOPHRENIA, PARANOID TYPE
     Route: 030
     Dates: start: 20140929, end: 20140929
  44. XEPLION [Suspect]
     Active Substance: PALIPERIDONE PALMITATE
     Indication: SCHIZOPHRENIA, PARANOID TYPE
     Route: 030
     Dates: start: 20150401
  45. XEPLION [Suspect]
     Active Substance: PALIPERIDONE PALMITATE
     Indication: SCHIZOPHRENIA, PARANOID TYPE
     Route: 030
     Dates: start: 20141027, end: 20141027
  46. LEVOTOMIN [Concomitant]
     Active Substance: LEVOMEPROMAZINE
     Indication: SCHIZOPHRENIA, PARANOID TYPE
     Route: 048
     Dates: end: 20140420
  47. AMLODIN OD [Concomitant]
     Active Substance: AMLODIPINE BESYLATE
     Indication: HYPERTENSION
     Route: 048
  48. LASIX [Concomitant]
     Active Substance: FUROSEMIDE
     Indication: WATER INTOXICATION
     Route: 050
     Dates: start: 20140410, end: 20140414

REACTIONS (10)
  - Water intoxication [Recovered/Resolved]
  - Glycosylated haemoglobin increased [Recovered/Resolved]
  - Irritability [Recovered/Resolved]
  - Middle insomnia [Recovered/Resolved]
  - Brain oedema [Recovered/Resolved]
  - Nasopharyngitis [Recovered/Resolved]
  - Rhabdomyolysis [Recovered/Resolved]
  - Osteoporosis [Unknown]
  - Pruritus [Recovered/Resolved]
  - Upper respiratory tract inflammation [Recovered/Resolved]

NARRATIVE: CASE EVENT DATE: 20140406
